FAERS Safety Report 4760697-3 (Version None)
Quarter: 2005Q3

REPORT INFORMATION
  Report Type: 
  Country: None (occurrence: None)
  Receive Date: 20050902
  Receipt Date: 20050824
  Transmission Date: 20060218
  Serious: Yes (Other)
  Sender: FDA-Public Use
  Company Number: US-JNJFOC-20050806503

PATIENT
  Sex: Female
  Weight: 56.7 kg

DRUGS (3)
  1. RISPERDAL [Suspect]
     Indication: DRUG USE FOR UNKNOWN INDICATION
     Route: 048
  2. ELIDEL [Concomitant]
     Route: 061
  3. ELOCON [Concomitant]
     Route: 061

REACTIONS (3)
  - HEAT STROKE [None]
  - HEMIPARESIS [None]
  - SOMNOLENCE [None]
